FAERS Safety Report 18440746 (Version 11)
Quarter: 2022Q3

REPORT INFORMATION
  Report Type: Spontaneous
  Country: CA (occurrence: CA)
  Receive Date: 20201029
  Receipt Date: 20220714
  Transmission Date: 20221026
  Serious: Yes (Other)
  Sender: FDA-Public Use
  Company Number: CA-PFIZER INC-2020416970

PATIENT
  Age: 54 Year
  Sex: Male

DRUGS (6)
  1. XELJANZ [Suspect]
     Active Substance: TOFACITINIB CITRATE
     Indication: Colitis ulcerative
     Dosage: 10 MG, 2X/DAY
     Route: 048
     Dates: start: 20201009, end: 202102
  2. XELJANZ [Suspect]
     Active Substance: TOFACITINIB CITRATE
     Dosage: 10 MG, 2X/DAY
     Route: 048
     Dates: start: 20201020, end: 202102
  3. XELJANZ [Suspect]
     Active Substance: TOFACITINIB CITRATE
     Dosage: 10MG BID X 16 WEEKS AND THEN LOWER TO 5 BID THEREAFTER
     Route: 048
     Dates: start: 20220114, end: 2022
  4. XELJANZ [Suspect]
     Active Substance: TOFACITINIB CITRATE
     Dosage: 5 MG, 2X/DAY, ON HOLD
     Route: 048
     Dates: start: 2022
  5. BUDESONIDE [Concomitant]
     Active Substance: BUDESONIDE
     Dosage: UNK
  6. VITAMIN D NOS [Concomitant]
     Active Substance: VITAMIN D NOS
     Dosage: 2000 IU, 1X/DAY
     Route: 065

REACTIONS (17)
  - Rectal haemorrhage [Not Recovered/Not Resolved]
  - Haematochezia [Unknown]
  - Colitis ulcerative [Recovered/Resolved]
  - Drug ineffective [Unknown]
  - Proctalgia [Not Recovered/Not Resolved]
  - Diarrhoea [Unknown]
  - Impaired quality of life [Unknown]
  - Depressed mood [Unknown]
  - Mucous stools [Unknown]
  - Serum ferritin decreased [Recovering/Resolving]
  - Haemoglobin decreased [Unknown]
  - Diversion proctitis [Unknown]
  - Fatigue [Unknown]
  - Asthenia [Unknown]
  - Secretion discharge [Recovering/Resolving]
  - Stoma site discharge [Recovering/Resolving]
  - Muscle spasms [Not Recovered/Not Resolved]

NARRATIVE: CASE EVENT DATE: 20201001
